FAERS Safety Report 23272234 (Version 1)
Quarter: 2023Q4

REPORT INFORMATION
  Report Type: Other
  Country: NL (occurrence: NL)
  Receive Date: 20231207
  Receipt Date: 20231207
  Transmission Date: 20240109
  Serious: Yes (Other)
  Sender: FDA-Public Use
  Company Number: None

PATIENT

DRUGS (7)
  1. ATOMOXETINE [Suspect]
     Active Substance: ATOMOXETINE
     Indication: Attention deficit hyperactivity disorder
     Dosage: 25 MILLIGRAM, OD (14 DAGEN: 1X PER DAG 25MG)
     Route: 065
     Dates: start: 20230919
  2. ATOMOXETINE [Suspect]
     Active Substance: ATOMOXETINE
     Dosage: 40 MILLIGRAM, OD (DAARNA 4 WEKEN 40MG)
     Route: 065
     Dates: start: 202310, end: 20231031
  3. NEBIDO [TESTOSTERONE UNDECANOATE] [Concomitant]
     Indication: Product used for unknown indication
     Dosage: 250 MG/ML (INJECTIEVLOEISTOF, 250 MG/ML (MILLIGRAM PER MILLILITER))
     Route: 065
  4. METHYL PHENIDATE [METHYLPHENIDATE] [Concomitant]
     Indication: Product used for unknown indication
     Dosage: 5 MILLIGRAM
     Route: 065
  5. METHYLPHENIDATE [Concomitant]
     Active Substance: METHYLPHENIDATE
     Indication: Product used for unknown indication
     Dosage: 20 MILLIGRAM (CAPSULE MET GEREGULEERDE AFGIFTE, 20 MG (MILLIGRAM))
     Route: 065
  6. DEXTROAMPHETAMINE SULFATE [Concomitant]
     Active Substance: DEXTROAMPHETAMINE SULFATE
     Indication: Product used for unknown indication
     Dosage: 5 MILLIGRAM
     Route: 065
  7. LISDEXAMFETAMINE DIMESYLATE [Concomitant]
     Active Substance: LISDEXAMFETAMINE DIMESYLATE
     Indication: Product used for unknown indication
     Dosage: 30 MILLIGRAM
     Route: 065

REACTIONS (2)
  - Suicidal ideation [Recovering/Resolving]
  - Depressive symptom [Recovering/Resolving]
